FAERS Safety Report 7540268-6 (Version None)
Quarter: 2011Q2

REPORT INFORMATION
  Report Type: 
  Country: None (occurrence: None)
  Receive Date: 20110610
  Receipt Date: 20110531
  Transmission Date: 20111010
  Serious: Yes (Other)
  Sender: FDA-Public Use
  Company Number: PHEH2006US11914

PATIENT
  Sex: Female
  Weight: 58.049 kg

DRUGS (17)
  1. VICODIN [Concomitant]
     Indication: PAIN IN JAW
  2. AROMASIN [Concomitant]
  3. VITAMIN D [Concomitant]
  4. IBUPROFEN [Concomitant]
  5. AREDIA [Suspect]
     Indication: BREAST CANCER
  6. TAXOTERE [Concomitant]
  7. AVELOX [Concomitant]
     Dosage: 400 MG, DAILY
  8. MAGNESIUM OXIDE [Concomitant]
  9. COUMADIN [Concomitant]
  10. SIMVASTATIN [Concomitant]
     Dosage: 20 MG, QD
     Route: 048
  11. FLAGYL [Concomitant]
  12. RADIATION THERAPY [Concomitant]
  13. ZOMETA [Suspect]
     Indication: METASTASES TO BONE
     Dosage: UNK, QMO
     Dates: start: 20020701, end: 20040907
  14. TEMAZEPAM [Concomitant]
  15. FEMARA [Concomitant]
     Indication: BREAST CANCER
     Dosage: 2.5 MG, QD
     Route: 048
  16. CELEXA [Concomitant]
  17. POTASSIUM CHLORIDE [Concomitant]

REACTIONS (37)
  - CHILLS [None]
  - MUSCULAR WEAKNESS [None]
  - LUMBAR SPINAL STENOSIS [None]
  - ANXIETY [None]
  - ASTHENIA [None]
  - PYREXIA [None]
  - GAIT DISTURBANCE [None]
  - NEOPLASM PROGRESSION [None]
  - PULMONARY HYPERTENSION [None]
  - BIOPSY BREAST ABNORMAL [None]
  - HYPOPHAGIA [None]
  - COLONIC POLYP [None]
  - PNEUMONIA [None]
  - TACHYCARDIA [None]
  - PULMONARY HILUM MASS [None]
  - DECREASED INTEREST [None]
  - DENTAL CARIES [None]
  - PAIN IN JAW [None]
  - SEPSIS [None]
  - INTERVERTEBRAL DISC PROTRUSION [None]
  - OSTEOARTHRITIS [None]
  - AORTIC VALVE SCLEROSIS [None]
  - DEFORMITY [None]
  - GENERAL PHYSICAL HEALTH DETERIORATION [None]
  - COUGH [None]
  - NEOPLASM MALIGNANT [None]
  - OSTEONECROSIS OF JAW [None]
  - PAIN [None]
  - BONE DISORDER [None]
  - HYPOTENSION [None]
  - BREAST CANCER METASTATIC [None]
  - EMOTIONAL DISTRESS [None]
  - BLOOD GLUCOSE INCREASED [None]
  - NEUTROPENIA [None]
  - SEPTIC SHOCK [None]
  - CENTRAL NERVOUS SYSTEM LESION [None]
  - HYPERPLASIA [None]
